FAERS Safety Report 8507716-6 (Version None)
Quarter: 2012Q3

REPORT INFORMATION
  Report Type: 
  Country: None (occurrence: None)
  Receive Date: 20120709
  Receipt Date: 20120709
  Transmission Date: 20120928
  Serious: Yes (Death)
  Sender: FDA-Public Use
  Company Number: None

PATIENT
  Sex: Female

DRUGS (2)
  1. LEUCOVORIN CALCIUM [Suspect]
  2. METHOTREXATE SODIUM [Suspect]
     Dosage: TABLET ORAL 5 MG
     Route: 048

REACTIONS (9)
  - JAUNDICE [None]
  - ILL-DEFINED DISORDER [None]
  - ASTHENIA [None]
  - PYREXIA [None]
  - CHILLS [None]
  - COUGH [None]
  - TOXICITY TO VARIOUS AGENTS [None]
  - DIZZINESS [None]
  - NAUSEA [None]
